FAERS Safety Report 17449208 (Version 1)
Quarter: 2020Q1

REPORT INFORMATION
  Report Type: Spontaneous
  Country: FR (occurrence: FR)
  Receive Date: 20200224
  Receipt Date: 20200224
  Transmission Date: 20200409
  Serious: Yes (Hospitalization)
  Sender: FDA-Public Use
  Company Number: FR-TEVA-2020-FR-1190320

PATIENT
  Age: 54 Year
  Sex: Male

DRUGS (11)
  1. ATENOLOL. [Suspect]
     Active Substance: ATENOLOL
     Indication: PRODUCT USED FOR UNKNOWN INDICATION
     Route: 048
     Dates: start: 20200106, end: 20200127
  2. LAMICTAL [Concomitant]
     Active Substance: LAMOTRIGINE
     Route: 048
  3. AMIODARONE [Suspect]
     Active Substance: AMIODARONE
     Indication: PRODUCT USED FOR UNKNOWN INDICATION
     Route: 048
     Dates: start: 20200106, end: 20200127
  4. UVEDOSE [Concomitant]
     Active Substance: CHOLECALCIFEROL
  5. URBANYL 5 MG, G?LULE [Concomitant]
     Active Substance: CLOBAZAM
     Route: 048
  6. LEVOTHYROX 25 MICROGRAMMES, COMPRIM? S?CABLE [Concomitant]
     Active Substance: LEVOTHYROXINE SODIUM
  7. COUMADINE 5 MG, COMPRIM? S?CABLE [Concomitant]
     Active Substance: WARFARIN SODIUM
  8. RENVELA [Concomitant]
     Active Substance: SEVELAMER CARBONATE
     Route: 065
  9. EMLA 5 POUR CENT, CR?ME [Concomitant]
     Route: 048
  10. OROCAL 500 MG, COMPRIM? [Concomitant]
     Route: 048
  11. DEPAKINE [Concomitant]
     Active Substance: VALPROATE SODIUM
     Route: 065

REACTIONS (1)
  - Drug reaction with eosinophilia and systemic symptoms [Recovering/Resolving]

NARRATIVE: CASE EVENT DATE: 20200120
